FAERS Safety Report 8791909 (Version 2)
Quarter: 2012Q4

REPORT INFORMATION
  Report Type: 
  Country: US (occurrence: US)
  Receive Date: 20120918
  Receipt Date: 20121003
  Transmission Date: 20130627
  Serious: No
  Sender: FDA-Public Use
  Company Number: US-VERTEX PHARMACEUTICAL INC.-2012-020841

PATIENT
  Age: 49 Year
  Sex: Male
  Weight: 99 kg

DRUGS (14)
  1. VX-950 [Suspect]
     Indication: HEPATITIS C
     Dosage: 750 mg, tid
     Route: 048
  2. RIBAVIRIN [Concomitant]
     Dosage: 200 mg, UNK
  3. PEGASYS [Concomitant]
     Indication: HEPATITIS C
     Dosage: 180 ?g, UNK
     Route: 058
  4. VITAMIN D /00107901/ [Concomitant]
     Dosage: 50000 UNK, UNK
     Route: 048
  5. VITAMIN B6 [Concomitant]
     Dosage: 250 mg, UNK
     Route: 048
  6. VITAMIN B-12 [Concomitant]
     Dosage: 2000 ?g, UNK
     Route: 048
  7. POTASSIUM [Concomitant]
     Dosage: 75 mg, UNK
     Route: 048
  8. OXYCODONE [Concomitant]
     Dosage: 5 mg, UNK
  9. LYRICA [Concomitant]
     Dosage: 200 mg, UNK
     Route: 048
  10. CYCLOBENZAPRIN HCL [Concomitant]
     Dosage: 15 mg, UNK
     Route: 048
  11. FUROSEMIDE [Concomitant]
     Dosage: 20 mg, UNK
  12. OMEPRAZOLE [Concomitant]
     Dosage: 10 mg, UNK
     Route: 048
  13. GUIATUSS [Concomitant]
     Dosage: UNK
     Route: 048
  14. SIMETHICONE [Concomitant]
     Dosage: 80 mg, UNK

REACTIONS (5)
  - Dyspnoea [Unknown]
  - Pyrexia [Unknown]
  - Myalgia [Unknown]
  - Hyperhidrosis [Unknown]
  - Rash pruritic [Unknown]
